FAERS Safety Report 24941138 (Version 3)
Quarter: 2025Q1

REPORT INFORMATION
  Report Type: Spontaneous
  Country: US (occurrence: US)
  Receive Date: 20250207
  Receipt Date: 20250311
  Transmission Date: 20250409
  Serious: Yes (Death, Hospitalization, Other)
  Sender: JOHNSON AND JOHNSON
  Company Number: US-JNJFOC-20250196550

PATIENT
  Age: 78 Year
  Sex: Male

DRUGS (5)
  1. CARVYKTI [Suspect]
     Active Substance: CILTACABTAGENE AUTOLEUCEL
     Indication: Plasma cell myeloma
     Route: 065
     Dates: start: 20240819
  2. VEDOLIZUMAB [Suspect]
     Active Substance: VEDOLIZUMAB
     Indication: Immune-mediated enterocolitis
  3. VORICONAZOLE [Suspect]
     Active Substance: VORICONAZOLE
     Indication: Lung opacity
  4. UNSPECIFIED INGREDIENT [Suspect]
     Active Substance: UNSPECIFIED INGREDIENT
     Indication: Immune-mediated enterocolitis
  5. UNSPECIFIED INGREDIENT [Suspect]
     Active Substance: UNSPECIFIED INGREDIENT
     Indication: Product used for unknown indication

REACTIONS (13)
  - Immune-mediated enterocolitis [Fatal]
  - Immune-mediated oesophagitis [Unknown]
  - Lacunar infarction [Unknown]
  - Pleural effusion [Unknown]
  - Lung opacity [Unknown]
  - Malnutrition [Unknown]
  - Ventricular tachycardia [Unknown]
  - Thrombocytopenia [Unknown]
  - Deep vein thrombosis [Unknown]
  - Atrial fibrillation [Unknown]
  - Anaemia [Unknown]
  - Hypertransaminasaemia [Unknown]
  - Insomnia [Unknown]
